FAERS Safety Report 5560480-5 (Version None)
Quarter: 2007Q4

REPORT INFORMATION
  Report Type: 
  Country: None (occurrence: None)
  Receive Date: 20071215
  Receipt Date: 20071107
  Transmission Date: 20080405
  Serious: No
  Sender: FDA-Public Use
  Company Number: US-ABBOTT-07P-163-0424430-00

PATIENT
  Sex: Female
  Weight: 97.7 kg

DRUGS (5)
  1. HUMIRA [Suspect]
     Indication: CROHN'S DISEASE
     Route: 058
     Dates: start: 20071001
  2. HUMIRA [Suspect]
     Route: 058
     Dates: start: 20070901, end: 20070901
  3. HUMIRA [Suspect]
     Route: 058
     Dates: start: 20070901, end: 20070901
  4. VALACYCLOVIR HCL [Concomitant]
     Indication: HERPES VIRUS INFECTION
     Route: 048
     Dates: start: 20030101
  5. METOPROLOL [Concomitant]
     Indication: HYPERTENSION
     Route: 048
     Dates: start: 20070901

REACTIONS (4)
  - CROHN'S DISEASE [None]
  - DIARRHOEA [None]
  - MUSCLE SPASMS [None]
  - RECTAL HAEMORRHAGE [None]
